FAERS Safety Report 21588193 (Version 1)
Quarter: 2022Q4

REPORT INFORMATION
  Report Type: Report from Study
  Country: JP (occurrence: JP)
  Receive Date: 20221114
  Receipt Date: 20221114
  Transmission Date: 20230113
  Serious: Yes (Death, Other)
  Sender: FDA-Public Use
  Company Number: JP-BRISTOL-MYERS SQUIBB COMPANY-2022-136389

PATIENT
  Age: 73 Year
  Sex: Male
  Weight: 56.5 kg

DRUGS (11)
  1. YERVOY [Suspect]
     Active Substance: IPILIMUMAB
     Indication: Non-small cell lung cancer recurrent
     Route: 041
     Dates: start: 20210216, end: 20210511
  2. YERVOY [Suspect]
     Active Substance: IPILIMUMAB
     Route: 041
     Dates: end: 20210622
  3. YERVOY [Suspect]
     Active Substance: IPILIMUMAB
  4. OPDIVO [Suspect]
     Active Substance: NIVOLUMAB
     Indication: Non-small cell lung cancer recurrent
     Route: 041
     Dates: start: 20210216, end: 20210601
  5. OPDIVO [Suspect]
     Active Substance: NIVOLUMAB
     Route: 041
     Dates: end: 20210622
  6. CARBOPLATIN [Suspect]
     Active Substance: CARBOPLATIN
     Indication: Non-small cell lung cancer recurrent
     Route: 065
     Dates: start: 20210216, end: 20210309
  7. CARBOPLATIN [Suspect]
     Active Substance: CARBOPLATIN
     Route: 065
     Dates: end: 20210622
  8. CARBOPLATIN [Suspect]
     Active Substance: CARBOPLATIN
     Route: 065
     Dates: start: 20210721, end: 20210817
  9. PEMETREXED [Suspect]
     Active Substance: PEMETREXED
     Indication: Non-small cell lung cancer recurrent
     Route: 065
     Dates: start: 20210216, end: 20210309
  10. PEMETREXED [Suspect]
     Active Substance: PEMETREXED
     Route: 065
     Dates: end: 20210622
  11. PEMETREXED [Suspect]
     Active Substance: PEMETREXED
     Route: 065
     Dates: start: 20210721, end: 20210817

REACTIONS (1)
  - Death [Fatal]

NARRATIVE: CASE EVENT DATE: 20220101
